FAERS Safety Report 11552818 (Version 1)
Quarter: 2015Q3

REPORT INFORMATION
  Report Type: Spontaneous
  Country: CA (occurrence: CA)
  Receive Date: 20150925
  Receipt Date: 20150925
  Transmission Date: 20151125
  Serious: Yes (Other)
  Sender: FDA-Public Use
  Company Number: CA-ORION CORPORATION ORION PHARMA-TREX2015-0598

PATIENT
  Age: 43 Year
  Sex: Female

DRUGS (1)
  1. METHOTREXATE [Suspect]
     Active Substance: METHOTREXATE
     Route: 065

REACTIONS (8)
  - Knee arthroplasty [Unknown]
  - Joint swelling [Unknown]
  - Arthropathy [Unknown]
  - Pain [Unknown]
  - Drug ineffective [Unknown]
  - Product quality issue [Unknown]
  - Peripheral swelling [Unknown]
  - Local swelling [Unknown]

NARRATIVE: CASE EVENT DATE: 2005
